FAERS Safety Report 12283814 (Version 1)
Quarter: 2016Q2

REPORT INFORMATION
  Report Type: Spontaneous
  Country: US (occurrence: US)
  Receive Date: 20160419
  Receipt Date: 20160419
  Transmission Date: 20160815
  Serious: No
  Sender: FDA-Public Use
  Company Number: US-BANPHARM-20153865

PATIENT
  Age: 65 Year
  Sex: Female
  Weight: 61.24 kg

DRUGS (2)
  1. ALEVE [Suspect]
     Active Substance: NAPROXEN SODIUM
     Indication: ARTHRITIS
     Dosage: 2 DF{ PRN,
     Route: 048
     Dates: start: 20150408, end: 20150417
  2. DILANTIN [Concomitant]
     Active Substance: PHENYTOIN

REACTIONS (1)
  - Abdominal pain upper [Recovered/Resolved]

NARRATIVE: CASE EVENT DATE: 20150411
